FAERS Safety Report 13652205 (Version 1)
Quarter: 2017Q2

REPORT INFORMATION
  Report Type: Spontaneous
  Country: CA (occurrence: CA)
  Receive Date: 20170614
  Receipt Date: 20170614
  Transmission Date: 20170830
  Serious: Yes (Other)
  Sender: FDA-Public Use
  Company Number: CA-JNJFOC-20170609964

PATIENT

DRUGS (3)
  1. PREZISTA [Suspect]
     Active Substance: DARUNAVIR ETHANOLATE
     Indication: PRODUCT USED FOR UNKNOWN INDICATION
     Route: 048
  2. INTELENCE [Suspect]
     Active Substance: ETRAVIRINE
     Indication: PRODUCT USED FOR UNKNOWN INDICATION
     Route: 048
  3. RALTEGRAVIR. [Suspect]
     Active Substance: RALTEGRAVIR
     Indication: HIV INFECTION
     Route: 048

REACTIONS (1)
  - Neuropathy peripheral [Unknown]
